FAERS Safety Report 18361482 (Version 1)
Quarter: 2020Q4

REPORT INFORMATION
  Report Type: Spontaneous
  Country: ES (occurrence: ES)
  Receive Date: 20201008
  Receipt Date: 20201008
  Transmission Date: 20210114
  Serious: Yes (Hospitalization)
  Sender: FDA-Public Use
  Company Number: ES-ABBVIE-20K-144-3594922-00

PATIENT
  Age: 53 Year
  Sex: Female

DRUGS (5)
  1. RALTEGRAVIR. [Suspect]
     Active Substance: RALTEGRAVIR
     Indication: ANTIRETROVIRAL THERAPY
     Dosage: (400 MG TWICE DAILY),
     Route: 065
     Dates: start: 201801
  2. TADALAFIL. [Suspect]
     Active Substance: TADALAFIL
     Indication: PULMONARY ARTERIAL HYPERTENSION
     Dosage: (20 MG ONCE DAILY)
     Route: 065
     Dates: start: 201801
  3. LOPINAVIR/RITONAVIR [Suspect]
     Active Substance: LOPINAVIR\RITONAVIR
     Indication: ANTIRETROVIRAL THERAPY
     Dosage: (400/100 MG TWICE DAILY)
     Route: 048
     Dates: start: 201801
  4. DARUNAVIR, COBICISTAT [Interacting]
     Active Substance: COBICISTAT\DARUNAVIR ETHANOLATE
     Indication: ANTIRETROVIRAL THERAPY
     Dosage: (800/150 MG ONCE DAILY).
     Route: 065
     Dates: start: 201804
  5. BOSENTAN. [Interacting]
     Active Substance: BOSENTAN
     Indication: ANTIRETROVIRAL THERAPY
     Dosage: (125 MG TWICE DAILY)
     Route: 065
     Dates: start: 201801

REACTIONS (3)
  - Fluid retention [Recovering/Resolving]
  - Drug interaction [Unknown]
  - Virologic failure [Recovering/Resolving]
